FAERS Safety Report 5541724-2 (Version None)
Quarter: 2007Q4

REPORT INFORMATION
  Report Type: 
  Country: None (occurrence: None)
  Receive Date: 20071210
  Receipt Date: 20071203
  Transmission Date: 20080405
  Serious: Yes (Other)
  Sender: FDA-Public Use
  Company Number: ES-BRISTOL-MYERS SQUIBB COMPANY-14002950

PATIENT
  Age: 57 Year
  Sex: Male

DRUGS (3)
  1. DIDANOSINE [Suspect]
     Indication: HIV INFECTION
     Dates: start: 20020508, end: 20021223
  2. LAMIVUDINE [Suspect]
     Indication: HIV INFECTION
     Dates: start: 20020508, end: 20021223
  3. LOPINAVIR AND RITONAVIR [Suspect]
     Indication: HIV INFECTION
     Dates: start: 20020508, end: 20021223

REACTIONS (1)
  - POLYNEUROPATHY [None]
